FAERS Safety Report 12891293 (Version 1)
Quarter: 2016Q4

REPORT INFORMATION
  Report Type: Spontaneous
  Country: US (occurrence: US)
  Receive Date: 20161026
  Receipt Date: 20161026
  Transmission Date: 20170207
  Serious: Yes (Disabling)
  Sender: FDA-Public Use
  Company Number: None

PATIENT
  Age: 38 Year
  Sex: Female
  Weight: 99 kg

DRUGS (16)
  1. OXYCODONE ACETAMINOPHEN 7.5-325 ACTAVIS [Suspect]
     Active Substance: ACETAMINOPHEN\OXYCODONE HYDROCHLORIDE
     Indication: PAIN IN JAW
     Dosage: ?          QUANTITY:120 TABLET(S);?
     Route: 048
     Dates: start: 20160905, end: 20160927
  2. QNASAL NASAL SPRAY [Concomitant]
  3. VITAMIN [Concomitant]
     Active Substance: VITAMINS
  4. FOLIC ACID. [Concomitant]
     Active Substance: FOLIC ACID
  5. GLUCOSAMINE/CHONDROTIN/MSM [Concomitant]
  6. PERCOCETE [Concomitant]
  7. VITAMIN D [Concomitant]
     Active Substance: CHOLECALCIFEROL
  8. OXYCODONE ACETAMINOPHEN 7.5-325 ACTAVIS [Suspect]
     Active Substance: ACETAMINOPHEN\OXYCODONE HYDROCHLORIDE
     Indication: FACIAL PAIN
     Dosage: ?          QUANTITY:120 TABLET(S);?
     Route: 048
     Dates: start: 20160905, end: 20160927
  9. CARISOPRODOL. [Concomitant]
     Active Substance: CARISOPRODOL
  10. VITAMIN B12 [Concomitant]
     Active Substance: CYANOCOBALAMIN
  11. DRAMAMINE [Concomitant]
     Active Substance: DIMENHYDRINATE
  12. PERCOCETE [Concomitant]
     Indication: TRIGEMINAL NEURALGIA
  13. BIRTH CONTROL PILLS [Concomitant]
     Active Substance: UNSPECIFIED INGREDIENT
  14. OXYCODONE ACETAMINOPHEN 7.5-325 ACTAVIS [Suspect]
     Active Substance: ACETAMINOPHEN\OXYCODONE HYDROCHLORIDE
     Indication: TRIGEMINAL NEURALGIA
     Dosage: ?          QUANTITY:120 TABLET(S);?
     Route: 048
     Dates: start: 20160905, end: 20160927
  15. NEURONTIN [Concomitant]
     Active Substance: GABAPENTIN
  16. MELOXICAM. [Concomitant]
     Active Substance: MELOXICAM

REACTIONS (7)
  - Condition aggravated [None]
  - Panic attack [None]
  - Anxiety [None]
  - Drug effect decreased [None]
  - Muscle spasms [None]
  - Product substitution issue [None]
  - Pain [None]

NARRATIVE: CASE EVENT DATE: 20160905
